FAERS Safety Report 7041311-3 (Version None)
Quarter: 2010Q4

REPORT INFORMATION
  Report Type: 
  Country: None (occurrence: None)
  Receive Date: 20101013
  Receipt Date: 20101005
  Transmission Date: 20110411
  Serious: Yes (Life-Threatening, Hospitalization)
  Sender: FDA-Public Use
  Company Number: FR-SANOFI-AVENTIS-2010SA059500

PATIENT
  Age: 77 Year
  Sex: Female

DRUGS (7)
  1. FUROSEMIDE [Suspect]
     Indication: PRODUCT USED FOR UNKNOWN INDICATION
     Route: 048
  2. ENDOXAN [Suspect]
     Indication: LYMPHOMA
     Route: 048
  3. MOPRAL [Suspect]
     Indication: PRODUCT USED FOR UNKNOWN INDICATION
     Route: 048
  4. DOMPERIDONE [Concomitant]
  5. CACIT D3 [Concomitant]
  6. CORTANCYL [Concomitant]
  7. DIFFU K [Concomitant]

REACTIONS (1)
  - PANCYTOPENIA [None]
